FAERS Safety Report 11953793 (Version 2)
Quarter: 2016Q1

REPORT INFORMATION
  Report Type: Spontaneous
  Country: US (occurrence: US)
  Receive Date: 20160126
  Receipt Date: 20160127
  Transmission Date: 20160526
  Serious: No
  Sender: FDA-Public Use
  Company Number: US-009507513-1601USA008730

PATIENT
  Age: 29 Year
  Sex: Female
  Weight: 156.92 kg

DRUGS (1)
  1. NEXPLANON [Suspect]
     Active Substance: ETONOGESTREL
     Indication: CONTRACEPTION
     Dosage: 1 ROD PER 3 YEAR, STRENGTH: 68 MG
     Route: 059

REACTIONS (4)
  - Product quality issue [Unknown]
  - Device breakage [Unknown]
  - No adverse event [Unknown]
  - Device kink [Unknown]

NARRATIVE: CASE EVENT DATE: 20160121
